FAERS Safety Report 24147127 (Version 1)
Quarter: 2024Q3

REPORT INFORMATION
  Report Type: Spontaneous
  Country: US (occurrence: None)
  Receive Date: 20240727
  Receipt Date: 20240727
  Transmission Date: 20241016
  Serious: No
  Sender: Public
  Company Number: None

PATIENT
  Age: 36 Year
  Sex: Male
  Weight: 83.3 kg

DRUGS (2)
  1. PONATINIB [Suspect]
     Active Substance: PONATINIB
     Dates: end: 20240317
  2. PREDNISONE [Suspect]
     Active Substance: PREDNISONE
     Dates: end: 20240312

REACTIONS (2)
  - Fatigue [None]
  - Night sweats [None]

NARRATIVE: CASE EVENT DATE: 20240221
